FAERS Safety Report 11416659 (Version 1)
Quarter: 2015Q3

REPORT INFORMATION
  Report Type: Report from Study
  Country: US (occurrence: US)
  Receive Date: 20150825
  Receipt Date: 20150825
  Transmission Date: 20151125
  Serious: No
  Sender: FDA-Public Use
  Company Number: US-AMGEN-USASP2015083223

PATIENT
  Age: 87 Year
  Sex: Female

DRUGS (1)
  1. ENBREL [Suspect]
     Active Substance: ETANERCEPT
     Indication: RHEUMATOID ARTHRITIS
     Dosage: UNK
     Route: 065
     Dates: start: 2015

REACTIONS (4)
  - Skin haemorrhage [Unknown]
  - Skin lesion [Unknown]
  - Compression fracture [Unknown]
  - Scratch [Unknown]

NARRATIVE: CASE EVENT DATE: 2015
